FAERS Safety Report 5149413-3 (Version None)
Quarter: 2006Q4

REPORT INFORMATION
  Report Type: 
  Country: None (occurrence: None)
  Receive Date: 20061113
  Receipt Date: 20060104
  Transmission Date: 20070319
  Serious: Yes (Life-Threatening, Hospitalization, Other)
  Sender: FDA-Public Use
  Company Number: 431043

PATIENT
  Sex: Female

DRUGS (2)
  1. COREG [Suspect]
     Route: 048
  2. UNKNOWN [Concomitant]

REACTIONS (2)
  - ATRIOVENTRICULAR BLOCK SECOND DEGREE [None]
  - ATRIOVENTRICULAR BLOCK THIRD DEGREE [None]
